FAERS Safety Report 7217134-9 (Version None)
Quarter: 2011Q1

REPORT INFORMATION
  Report Type: 
  Country: None (occurrence: None)
  Receive Date: 20110110
  Receipt Date: 20110107
  Transmission Date: 20110831
  Serious: Yes (Hospitalization)
  Sender: FDA-Public Use
  Company Number: JP-BRISTOL-MYERS SQUIBB COMPANY-15476070

PATIENT
  Age: 72 Year
  Sex: Male

DRUGS (3)
  1. PREDONINE [Concomitant]
     Route: 048
  2. ARAVA [Concomitant]
     Route: 048
  3. ORENCIA [Suspect]
     Indication: RHEUMATOID ARTHRITIS
     Dates: start: 20101206, end: 20101220

REACTIONS (1)
  - INTERSTITIAL LUNG DISEASE [None]
